FAERS Safety Report 4873385-X (Version None)
Quarter: 2005Q4

REPORT INFORMATION
  Report Type: 
  Country: None (occurrence: None)
  Receive Date: 20051201
  Receipt Date: 20050713
  Transmission Date: 20060501
  Serious: No
  Sender: FDA-Public Use
  Company Number: 2005PV000348

PATIENT
  Age: 45 Year
  Sex: Female
  Weight: 124.2856 kg

DRUGS (13)
  1. BYETTA [Suspect]
     Indication: DIABETES MELLITUS NON-INSULIN-DEPENDENT
     Dosage: SEE IMAGE
     Route: 058
     Dates: start: 20050621, end: 20050721
  2. BYETTA [Suspect]
     Indication: DIABETES MELLITUS NON-INSULIN-DEPENDENT
     Dosage: SEE IMAGE
     Route: 058
     Dates: start: 20050721
  3. LEVOTHYROXINE SODIUM [Concomitant]
  4. BUMENTANIDE [Concomitant]
  5. ALTACE [Concomitant]
  6. AMARYL [Concomitant]
  7. NEXIUM [Concomitant]
  8. CRESTOR [Concomitant]
  9. ASPIRIN [Concomitant]
  10. REGLAN [Concomitant]
  11. METFORMIN [Concomitant]
  12. ACTOS [Concomitant]
  13. ADVIL [Concomitant]

REACTIONS (9)
  - ABDOMINAL DISTENSION [None]
  - CHEST PAIN [None]
  - DECREASED APPETITE [None]
  - ERUCTATION [None]
  - FLATULENCE [None]
  - NAUSEA [None]
  - PALPITATIONS [None]
  - STRESS [None]
  - WEIGHT DECREASED [None]
